FAERS Safety Report 7802289-5 (Version None)
Quarter: 2011Q4

REPORT INFORMATION
  Report Type: 
  Country: None (occurrence: None)
  Receive Date: 20111007
  Receipt Date: 20110930
  Transmission Date: 20120403
  Serious: Yes (Other)
  Sender: FDA-Public Use
  Company Number: US-JNJFOC-20111002295

PATIENT
  Age: 41 Year
  Sex: Female

DRUGS (2)
  1. FENTANYL [Suspect]
     Indication: PAIN
     Dosage: ABOUT 1 MONTH AGO
     Route: 062
  2. DILAUDID [Suspect]
     Indication: PAIN
     Route: 065

REACTIONS (2)
  - PAIN [None]
  - SUICIDAL IDEATION [None]
